FAERS Safety Report 25545489 (Version 1)
Quarter: 2025Q3

REPORT INFORMATION
  Report Type: Spontaneous
  Country: US (occurrence: US)
  Receive Date: 20250711
  Receipt Date: 20250711
  Transmission Date: 20251021
  Serious: Yes (Hospitalization, Other)
  Sender: BRISTOL-MYERS SQUIBB COMPANY
  Company Number: US-BRISTOL-MYERS SQUIBB COMPANY-2025-097871

PATIENT
  Age: 53 Year
  Sex: Female

DRUGS (1)
  1. ZEPOSIA [Suspect]
     Active Substance: OZANIMOD HYDROCHLORIDE
     Indication: Multiple sclerosis
     Dosage: DAILY
     Route: 048
     Dates: start: 202311

REACTIONS (7)
  - Pyrexia [Unknown]
  - Chest pain [Unknown]
  - Anxiety [Unknown]
  - Pericarditis [Unknown]
  - Pericardial effusion [Unknown]
  - Atrial fibrillation [Unknown]
  - Cardiac tamponade [Unknown]

NARRATIVE: CASE EVENT DATE: 20241201
